FAERS Safety Report 6201855-0 (Version None)
Quarter: 2009Q2

REPORT INFORMATION
  Report Type: 
  Country: None (occurrence: None)
  Receive Date: 20090526
  Receipt Date: 20090227
  Transmission Date: 20091009
  Serious: Yes (Other)
  Sender: FDA-Public Use
  Company Number: SE-BIOGENIDEC-2009BI015440

PATIENT
  Sex: Male

DRUGS (2)
  1. AVONEX [Suspect]
     Indication: RELAPSING-REMITTING MULTIPLE SCLEROSIS
     Dates: start: 20050101, end: 20050101
  2. METHYLPREDNISOLONE [Concomitant]
     Indication: RELAPSING-REMITTING MULTIPLE SCLEROSIS
     Dates: start: 20050801

REACTIONS (5)
  - ADVERSE EVENT [None]
  - ATAXIA [None]
  - DYSARTHRIA [None]
  - IIIRD NERVE DISORDER [None]
  - PARAPARESIS [None]
